FAERS Safety Report 4558143-8 (Version None)
Quarter: 2005Q1

REPORT INFORMATION
  Report Type: 
  Country: None (occurrence: None)
  Receive Date: 20050121
  Receipt Date: 20050112
  Transmission Date: 20050727
  Serious: Yes (Hospitalization)
  Sender: FDA-Public Use
  Company Number: 200510272US

PATIENT
  Age: 57 Year
  Sex: Male

DRUGS (3)
  1. AMARYL [Suspect]
     Route: 048
     Dates: end: 20050111
  2. CARDIOVASCULAR SYSTEM DRUGS [Concomitant]
     Dosage: DOSE: UNK
  3. UNKNOWN DRUG [Concomitant]
     Dosage: DOSE: UNK

REACTIONS (2)
  - HYPOGLYCAEMIA [None]
  - RHABDOMYOLYSIS [None]
